FAERS Safety Report 14267685 (Version 1)
Quarter: 2017Q4

REPORT INFORMATION
  Report Type: Spontaneous
  Country: US (occurrence: US)
  Receive Date: 20171211
  Receipt Date: 20171211
  Transmission Date: 20180321
  Serious: No
  Sender: FDA-Public Use
  Company Number: US-ROCHE-1936769

PATIENT
  Sex: Female
  Weight: 44.04 kg

DRUGS (1)
  1. VALIUM [Suspect]
     Active Substance: DIAZEPAM
     Indication: PRODUCT USED FOR UNKNOWN INDICATION
     Route: 065

REACTIONS (6)
  - Poor quality sleep [Unknown]
  - Drug ineffective [Unknown]
  - Malaise [Unknown]
  - Body height decreased [Unknown]
  - Cough [Unknown]
  - Dyspnoea [Unknown]
